FAERS Safety Report 20974656 (Version 1)
Quarter: 2022Q2

REPORT INFORMATION
  Report Type: Spontaneous
  Country: DE (occurrence: DE)
  Receive Date: 20220617
  Receipt Date: 20220617
  Transmission Date: 20220720
  Serious: Yes (Life-Threatening, Hospitalization, Other)
  Sender: FDA-Public Use
  Company Number: None

PATIENT
  Age: 79 Year
  Sex: Female
  Weight: 85 kg

DRUGS (11)
  1. METHOTREXATE [Suspect]
     Active Substance: METHOTREXATE
     Indication: Rheumatoid arthritis
     Dosage: 10 MG, WEEKLY FOR YEARS (BEFORE 18JAN2022)
     Route: 048
     Dates: end: 20220117
  2. FOLIC ACID [Suspect]
     Active Substance: FOLIC ACID
     Indication: Rheumatoid arthritis
     Dosage: 5 MG, DAILY
     Route: 048
     Dates: start: 20220119, end: 20220201
  3. MOXONIDINE [Concomitant]
     Active Substance: MOXONIDINE
     Dosage: 0.2 MG, 1X/DAY (0.5 - 0 - 0)
  4. IBUPROFEN [Concomitant]
     Active Substance: IBUPROFEN
     Indication: Postoperative analgesia
     Dosage: DAILY DOSE: 2400 MG MILLGRAM(S) EVERY DAYS 4 SEPARATED DOSES
     Route: 048
     Dates: start: 20220118, end: 20220123
  5. ENOXAPARIN [Concomitant]
     Active Substance: ENOXAPARIN
     Dosage: 20 MG, 2X/DAY (DOSE REDUCED TO 20 MG, 1 - 0 - 1)
  6. AMPICILLIN SODIUM\SULBACTAM SODIUM [Concomitant]
     Active Substance: AMPICILLIN SODIUM\SULBACTAM SODIUM
     Indication: Antibiotic prophylaxis
     Dosage: DAILY DOSE: 9 G GRAM(S) EVERY DAYS 3 SEPARATED DOSES
     Route: 042
     Dates: start: 20220117, end: 20220126
  7. METAMIZOL [Concomitant]
     Active Substance: METAMIZOLE SODIUM
     Dosage: 500 MG (WEEKS TO MONTHS PRE-OPERATIVELY)
     Route: 048
  8. PANTOPRAZOLE [Concomitant]
     Active Substance: PANTOPRAZOLE
     Indication: Gastritis prophylaxis
     Dosage: 40 MG, 1X/DAY
     Route: 048
     Dates: start: 20220118, end: 20220201
  9. MEROPENEM [Concomitant]
     Active Substance: MEROPENEM
     Indication: Antibiotic prophylaxis
     Dosage: DAILY DOSE: 3 G GRAM(S) EVERY DAYS 3 SEPARATED DOSES
     Route: 042
     Dates: start: 20220127, end: 20220201
  10. BISOPROLOL [Concomitant]
     Active Substance: BISOPROLOL
     Dosage: DAILY DOSE: 2.5 MG MILLGRAM(S) EVERY DAYS
  11. ACETAMINOPHEN [Concomitant]
     Active Substance: ACETAMINOPHEN
     Indication: Postoperative analgesia
     Dosage: DAILY DOSE: 2000 MG MILLGRAM(S) EVERY DAYS 4 SEPARATED DOSES
     Route: 048
     Dates: start: 20220118, end: 20220201

REACTIONS (16)
  - Drug hypersensitivity [Unknown]
  - Oral mucosal blistering [Unknown]
  - Product prescribing error [Unknown]
  - Toxicity to various agents [Unknown]
  - Pancytopenia [Unknown]
  - Post procedural contusion [Unknown]
  - Inappropriate schedule of product administration [Unknown]
  - Erysipelas [Unknown]
  - Gastrointestinal pain [Not Recovered/Not Resolved]
  - Skin haemorrhage [Recovering/Resolving]
  - Feeding disorder [Not Recovered/Not Resolved]
  - Toxic epidermal necrolysis [Recovering/Resolving]
  - Accidental overdose [Unknown]
  - Knee arthroplasty [Unknown]
  - Rash pruritic [Unknown]
  - Oral mucosal erythema [Unknown]

NARRATIVE: CASE EVENT DATE: 20220101
